FAERS Safety Report 19184774 (Version 2)
Quarter: 2021Q3

REPORT INFORMATION
  Report Type: Report from Study
  Country: CA (occurrence: CA)
  Receive Date: 20210427
  Receipt Date: 20210712
  Transmission Date: 20211014
  Serious: Yes (Hospitalization, Other)
  Sender: FDA-Public Use
  Company Number: NVSC2020CA036200

PATIENT
  Age: 55 Year
  Sex: Female

DRUGS (2)
  1. FINGOLIMOD. [Suspect]
     Active Substance: FINGOLIMOD
     Indication: PRODUCT USED FOR UNKNOWN INDICATION
     Dosage: UNK
     Route: 065
     Dates: start: 20200108, end: 20210402
  2. GILENYA [Suspect]
     Active Substance: FINGOLIMOD HYDROCHLORIDE
     Indication: RELAPSING-REMITTING MULTIPLE SCLEROSIS
     Dosage: UNK
     Route: 048
     Dates: start: 20160304, end: 20200108

REACTIONS (3)
  - Multiple sclerosis [Recovering/Resolving]
  - COVID-19 [Unknown]
  - Hemiparesis [Recovering/Resolving]

NARRATIVE: CASE EVENT DATE: 201810
